FAERS Safety Report 9800319 (Version 2)
Quarter: 2014Q1

REPORT INFORMATION
  Report Type: Report from Study
  Country: US (occurrence: US)
  Receive Date: 20140106
  Receipt Date: 20140228
  Transmission Date: 20141002
  Serious: Yes (Hospitalization)
  Sender: FDA-Public Use
  Company Number: US-ABBVIE-13P-163-1184300-00

PATIENT
  Sex: Female
  Weight: 108.96 kg

DRUGS (20)
  1. HUMIRA [Suspect]
     Indication: ANKYLOSING SPONDYLITIS
  2. HUMIRA [Suspect]
     Indication: RHEUMATOID ARTHRITIS
  3. COUMADIN [Concomitant]
     Indication: ATRIAL FIBRILLATION
  4. COUMADIN [Concomitant]
     Indication: FACTOR V DEFICIENCY
  5. ATENOLOL [Concomitant]
     Indication: PALPITATIONS
  6. IMURAN [Concomitant]
     Indication: BLADDER CYST
  7. DETROL LA [Concomitant]
     Indication: BLADDER CYST
  8. SKELAXIN [Concomitant]
     Indication: FIBROMYALGIA
  9. NEXIUM [Concomitant]
     Indication: GASTRIC DISORDER
  10. NEXIUM [Concomitant]
     Indication: PROPHYLAXIS
  11. FISH OIL [Concomitant]
     Indication: SUPPLEMENTATION THERAPY
  12. GLUCOSAMINE [Concomitant]
     Indication: SUPPLEMENTATION THERAPY
  13. VICODIN [Concomitant]
     Indication: PAIN
  14. VOLTAREN [Concomitant]
     Indication: ARTHRALGIA
  15. IBUPROFEN [Concomitant]
     Indication: PAIN
  16. FLOVENT [Concomitant]
     Indication: HYPERSENSITIVITY
  17. NASACORT [Concomitant]
     Indication: HYPERSENSITIVITY
  18. ZYRTEC [Concomitant]
     Indication: HYPERSENSITIVITY
  19. SINGULAIR [Concomitant]
     Indication: ASTHMA
  20. DUONEB [Concomitant]
     Indication: ASTHMA

REACTIONS (8)
  - Lung disorder [Recovered/Resolved]
  - Upper respiratory tract infection [Recovered/Resolved]
  - Pseudomonas infection [Recovered/Resolved]
  - Pneumonia streptococcal [Recovered/Resolved]
  - Pulmonary oedema [Recovered/Resolved]
  - Pericardial effusion [Recovered/Resolved]
  - Pneumonia legionella [Recovered/Resolved]
  - Sinus disorder [Recovered/Resolved]
